FAERS Safety Report 9077171 (Version 1)
Quarter: 2013Q1

REPORT INFORMATION
  Report Type: Report from Study
  Country: US (occurrence: US)
  Receive Date: 20130130
  Receipt Date: 20130130
  Transmission Date: 20140127
  Serious: Yes (Hospitalization, Other)
  Sender: FDA-Public Use
  Company Number: US-BAYER-2013-009167

PATIENT
  Age: 10 Day
  Sex: Male
  Weight: 1.81 kg

DRUGS (2)
  1. BETASERON [Suspect]
     Dosage: UNK
     Route: 064
     Dates: start: 20050415, end: 20110103
  2. BETASERON [Suspect]
     Dosage: UNK
     Route: 064
     Dates: start: 20120620, end: 20120717

REACTIONS (3)
  - Low birth weight baby [None]
  - Exposure during pregnancy [None]
  - Premature baby [None]
